FAERS Safety Report 4702169-8 (Version None)
Quarter: 2005Q2

REPORT INFORMATION
  Report Type: 
  Country: None (occurrence: None)
  Receive Date: 20050629
  Receipt Date: 20050523
  Transmission Date: 20051028
  Serious: Yes (Other)
  Sender: FDA-Public Use
  Company Number: 200511312EU

PATIENT
  Sex: Female

DRUGS (3)
  1. TELFAST [Suspect]
     Indication: HYPERSENSITIVITY
     Route: 048
     Dates: start: 20050520, end: 20050523
  2. ALBUTEROL [Concomitant]
     Indication: ASTHMA
     Route: 055
  3. UNKNOWN DRUG [Concomitant]
     Indication: ASTHMA

REACTIONS (2)
  - HYPERSENSITIVITY [None]
  - HYPOTHERMIA [None]
